FAERS Safety Report 11945730 (Version 1)
Quarter: 2016Q1

REPORT INFORMATION
  Report Type: Spontaneous
  Country: US (occurrence: US)
  Receive Date: 20160125
  Receipt Date: 20160125
  Transmission Date: 20160526
  Serious: No
  Sender: FDA-Public Use
  Company Number: US-JNJFOC-20151210372

PATIENT
  Age: 59 Year
  Sex: Female
  Weight: 63.5 kg

DRUGS (5)
  1. WOMENS ROGAINE UNSCENTED [Suspect]
     Active Substance: MINOXIDIL
     Indication: ALOPECIA
     Dosage: 3/4 CAPFUL ONCE A DAY
     Route: 061
  2. OTHER THERAPEUTIC PRODUCTS [Concomitant]
     Active Substance: UNSPECIFIED INGREDIENT
     Indication: ROUTINE HEALTH MAINTENANCE
     Dosage: LONG TIME
     Route: 065
  3. VITAMIN D3 [Concomitant]
     Active Substance: CHOLECALCIFEROL
     Indication: ROUTINE HEALTH MAINTENANCE
     Dosage: LONG TIME
     Route: 065
  4. WOMENS ROGAINE UNSCENTED [Suspect]
     Active Substance: MINOXIDIL
     Indication: ALOPECIA
     Dosage: 3/4 CAPFUL ONCE A DAY
     Route: 061
  5. JUICE PLUS [Concomitant]
     Active Substance: DIETARY SUPPLEMENT
     Indication: ROUTINE HEALTH MAINTENANCE
     Dosage: LONG TIME
     Route: 065

REACTIONS (2)
  - Incorrect dose administered [Not Recovered/Not Resolved]
  - Alopecia [Not Recovered/Not Resolved]
